FAERS Safety Report 25055106 (Version 5)
Quarter: 2025Q4

REPORT INFORMATION
  Report Type: Report from Study
  Country: EU (occurrence: EU)
  Receive Date: 20250308
  Receipt Date: 20251127
  Transmission Date: 20260117
  Serious: Yes (Death, Hospitalization)
  Sender: ABBVIE
  Company Number: EU-ABBVIE-6168907

PATIENT
  Sex: Male
  Weight: 102 kg

DRUGS (5)
  1. SKYRIZI [Suspect]
     Active Substance: RISANKIZUMAB-RZAA
     Indication: Psoriasis
     Route: 058
     Dates: start: 20191128, end: 20230711
  2. SKYRIZI [Suspect]
     Active Substance: RISANKIZUMAB-RZAA
     Route: 058
     Dates: start: 20240425, end: 20240604
  3. CIMZIA [Concomitant]
     Active Substance: CERTOLIZUMAB PEGOL
     Indication: Psoriasis
     Dates: start: 20190709, end: 20191128
  4. BRODALUMAB [Concomitant]
     Active Substance: BRODALUMAB
     Indication: Psoriasis
     Dates: start: 20180821, end: 20190625
  5. REMICADE [Concomitant]
     Active Substance: INFLIXIMAB
     Indication: Psoriasis
     Dates: start: 20161103, end: 20161121

REACTIONS (5)
  - Cardiac arrest [Fatal]
  - Femoral neck fracture [Recovered/Resolved with Sequelae]
  - Fall [Recovering/Resolving]
  - General physical health deterioration [Unknown]
  - Psoriasis [Unknown]

NARRATIVE: CASE EVENT DATE: 20230711
